FAERS Safety Report 4590233-6 (Version None)
Quarter: 2005Q1

REPORT INFORMATION
  Report Type: 
  Country: None (occurrence: None)
  Receive Date: 20050224
  Receipt Date: 20050218
  Transmission Date: 20050727
  Serious: Yes (Death)
  Sender: FDA-Public Use
  Company Number: US-809587413-K200500248

PATIENT
  Age: 64 Year
  Sex: Female

DRUGS (1)
  1. LORABID [Suspect]
     Indication: PERITONSILLAR ABSCESS
     Dosage: 400 MG, SINGLE
     Dates: start: 20031124, end: 20031124

REACTIONS (2)
  - ANAPHYLACTIC SHOCK [None]
  - OBSTRUCTIVE AIRWAYS DISORDER [None]
